FAERS Safety Report 22041599 (Version 1)
Quarter: 2023Q1

REPORT INFORMATION
  Report Type: Spontaneous
  Country: PL (occurrence: PL)
  Receive Date: 20230227
  Receipt Date: 20230227
  Transmission Date: 20230417
  Serious: Yes (Other)
  Sender: FDA-Public Use
  Company Number: PL-AMGEN-POLSP2023020809

PATIENT
  Age: 44 Year
  Sex: Female

DRUGS (4)
  1. FLUOROURACIL [Suspect]
     Active Substance: FLUOROURACIL
     Indication: Colorectal cancer metastatic
     Dosage: UNK, CYCLICAL
     Route: 065
     Dates: start: 202205
  2. VECTIBIX [Suspect]
     Active Substance: PANITUMUMAB
     Indication: Colorectal cancer metastatic
     Dosage: UNK, CYCLICAL
     Route: 065
     Dates: start: 202205
  3. LEUCOVORIN [Suspect]
     Active Substance: LEUCOVORIN
     Indication: Colorectal cancer metastatic
     Dosage: UNK, CYCLICAL
     Route: 065
     Dates: start: 202205
  4. OXALIPLATIN [Suspect]
     Active Substance: OXALIPLATIN
     Indication: Colorectal cancer metastatic
     Dosage: UNK, CYCLICAL
     Route: 065
     Dates: start: 202205

REACTIONS (4)
  - Polyneuropathy [Unknown]
  - Skin lesion [Unknown]
  - Skin ulcer [Unknown]
  - Erythema [Unknown]
